FAERS Safety Report 4280088-1 (Version None)
Quarter: 2004Q1

REPORT INFORMATION
  Report Type: 
  Country: None (occurrence: None)
  Receive Date: 20040126
  Receipt Date: 20040114
  Transmission Date: 20041129
  Serious: Yes (Other)
  Sender: FDA-Public Use
  Company Number: US-JNJFOC-20031104299

PATIENT
  Age: 32 Year
  Sex: Male
  Weight: 79.8331 kg

DRUGS (2)
  1. REMICADE [Suspect]
     Indication: ANKYLOSING SPONDYLITIS
     Dosage: 300 MG, 1 IN 3 MONTH, INTRAVENOUS
     Route: 042
     Dates: start: 20000101
  2. VOLTAREN [Concomitant]

REACTIONS (1)
  - DEAFNESS UNILATERAL [None]
